FAERS Safety Report 6262501-3 (Version None)
Quarter: 2009Q3

REPORT INFORMATION
  Report Type: 
  Country: None (occurrence: None)
  Receive Date: 20090709
  Receipt Date: 20090706
  Transmission Date: 20100115
  Serious: Yes (Death, Hospitalization, Other)
  Sender: FDA-Public Use
  Company Number: PHHY2009BR27515

PATIENT

DRUGS (4)
  1. MYFORTIC [Suspect]
     Indication: PROPHYLAXIS AGAINST TRANSPLANT REJECTION
     Route: 048
  2. PROGRAF [Concomitant]
     Indication: PROPHYLAXIS AGAINST TRANSPLANT REJECTION
     Dosage: 1 MG, UNK
  3. PROGRAF [Concomitant]
     Dosage: 5 MG, UNK
  4. SODIUM BICARBONATE [Concomitant]
     Indication: BLOOD PH
     Route: 042

REACTIONS (10)
  - ABDOMINAL PAIN UPPER [None]
  - CEREBROVASCULAR ACCIDENT [None]
  - COMA [None]
  - DIARRHOEA [None]
  - FACIAL PALSY [None]
  - FEELING ABNORMAL [None]
  - HUMAN POLYOMAVIRUS INFECTION [None]
  - HYPERHIDROSIS [None]
  - HYPOAESTHESIA [None]
  - MUSCLE SPASMS [None]
